FAERS Safety Report 9784980 (Version 1)
Quarter: 2013Q4

REPORT INFORMATION
  Report Type: Spontaneous
  Country: FR (occurrence: FR)
  Receive Date: 20131227
  Receipt Date: 20131227
  Transmission Date: 20140711
  Serious: Yes (Hospitalization)
  Sender: FDA-Public Use
  Company Number: FR-AMGEN-FRASP2013090641

PATIENT
  Age: 67 Year
  Sex: Female

DRUGS (9)
  1. VECTIBIX [Suspect]
     Indication: COLORECTAL CANCER
     Dosage: 400 MG, Q2WK
     Route: 042
     Dates: start: 20131021, end: 20131104
  2. ELOXATIN [Suspect]
     Indication: COLORECTAL CANCER
     Dosage: 140 MG, Q2WK
     Route: 042
     Dates: start: 20131021, end: 20131104
  3. FLUOROURACIL [Suspect]
     Indication: COLORECTAL CANCER
     Dosage: 3350 MG, Q2WK
     Route: 042
     Dates: start: 20131021, end: 20131105
  4. FOLINIC ACID [Concomitant]
     Indication: COLORECTAL CANCER
     Dosage: UNK
  5. ZOPHREN                            /00955301/ [Concomitant]
     Dosage: UNK
  6. SOLUMEDROL [Concomitant]
     Dosage: UNK
  7. PLITICAN [Concomitant]
     Dosage: UNK
  8. SECTRAL [Concomitant]
     Dosage: UNK
  9. KENZEN [Concomitant]
     Dosage: UNK

REACTIONS (2)
  - Rash [Recovering/Resolving]
  - Diarrhoea [Recovering/Resolving]
